FAERS Safety Report 9219797 (Version 1)
Quarter: 2013Q2

REPORT INFORMATION
  Report Type: Spontaneous
  Country: SE (occurrence: SE)
  Receive Date: 20130409
  Receipt Date: 20130409
  Transmission Date: 20140414
  Serious: Yes (Life-Threatening)
  Sender: FDA-Public Use
  Company Number: SE-ASTRAZENECA-2013SE22454

PATIENT
  Age: 99 Year
  Sex: Female

DRUGS (3)
  1. PROPOFOL [Suspect]
     Route: 042
     Dates: start: 20121105, end: 20121105
  2. OXASCAND [Concomitant]
  3. TROMBYL [Concomitant]

REACTIONS (3)
  - Aspiration [Unknown]
  - Pneumonia [Unknown]
  - Respiratory failure [Unknown]
